FAERS Safety Report 9503998 (Version 2)
Quarter: 2013Q4

REPORT INFORMATION
  Report Type: Spontaneous
  Country: FR (occurrence: FR)
  Receive Date: 20130906
  Receipt Date: 20131001
  Transmission Date: 20140711
  Serious: Yes (Other)
  Sender: FDA-Public Use
  Company Number: FR-AMGEN-FRASP2013062357

PATIENT
  Age: 64 Year
  Sex: Female
  Weight: 67 kg

DRUGS (10)
  1. ENBREL [Suspect]
     Indication: PSORIATIC ARTHROPATHY
     Dosage: 50 MG, WEEKLY
     Route: 065
     Dates: start: 201112
  2. METHOTREXATE SODIUM [Suspect]
     Indication: PSORIATIC ARTHROPATHY
     Dosage: UNK
     Route: 065
     Dates: start: 201301, end: 201308
  3. METOJECT [Suspect]
     Indication: PRODUCT USED FOR UNKNOWN INDICATION
     Dosage: UNK
     Route: 065
  4. FELDENE [Concomitant]
     Dosage: 1 DF, 1X/DAY
  5. MOPRAL                             /00661201/ [Concomitant]
     Dosage: 1 DF, 1X/DAY
  6. XANAX [Concomitant]
     Indication: ANXIETY
     Dosage: 1 DF, 1X/DAY
  7. XANAX [Concomitant]
     Indication: INSOMNIA
  8. STILNOX [Concomitant]
     Indication: ANXIETY
     Dosage: 1 DF, 1X/DAY
  9. STILNOX [Concomitant]
     Indication: INSOMNIA
  10. ACLASTA [Concomitant]
     Dosage: ONE INFUSION YEARLY
     Dates: start: 2011

REACTIONS (6)
  - Optic nerve injury [Unknown]
  - Dry eye [Unknown]
  - Ear disorder [Unknown]
  - Dysgeusia [Not Recovered/Not Resolved]
  - Vision blurred [Recovered/Resolved]
  - Rhinitis [Unknown]
